FAERS Safety Report 7250557-0 (Version None)
Quarter: 2011Q1

REPORT INFORMATION
  Report Type: 
  Country: None (occurrence: None)
  Receive Date: 20110128
  Receipt Date: 20110124
  Transmission Date: 20110831
  Serious: Yes (Life-Threatening, Other)
  Sender: FDA-Public Use
  Company Number: PHHY2010JP73152

PATIENT
  Sex: Male
  Weight: 61 kg

DRUGS (8)
  1. AMN107 [Suspect]
     Indication: CHRONIC MYELOID LEUKAEMIA
     Dosage: 800 MG, QD
     Route: 048
     Dates: start: 20091118, end: 20091207
  2. AMN107 [Suspect]
     Dosage: 200 MG, QD
     Route: 048
     Dates: start: 20100106, end: 20100113
  3. AMN107 [Suspect]
     Dosage: 400 MG, QD
     Route: 048
     Dates: start: 20100210, end: 20100316
  4. AMN107 [Suspect]
     Dosage: 400 MG, DAILY
     Route: 048
     Dates: start: 20100402
  5. HALCION [Concomitant]
     Dosage: 0.25 MG, UNK
     Route: 048
  6. AMN107 [Suspect]
     Dosage: 400 MG, QD
     Route: 048
     Dates: start: 20100113, end: 20100127
  7. AMN107 [Suspect]
     Dosage: 600 MG, QD
     Route: 048
     Dates: start: 20100127, end: 20100210
  8. AMN107 [Suspect]
     Dosage: 600 MG, DAILY
     Route: 048
     Dates: start: 20100317, end: 20100401

REACTIONS (3)
  - INFECTIVE SPONDYLITIS [None]
  - HEPATIC FUNCTION ABNORMAL [None]
  - RASH GENERALISED [None]
